FAERS Safety Report 9216948 (Version 1)
Quarter: 2013Q2

REPORT INFORMATION
  Report Type: Spontaneous
  Country: US (occurrence: US)
  Receive Date: 20130408
  Receipt Date: 20130408
  Transmission Date: 20140414
  Serious: Yes (Other)
  Sender: FDA-Public Use
  Company Number: US-GLAXOSMITHKLINE-A1014032A

PATIENT
  Sex: Male

DRUGS (1)
  1. POTIGA [Suspect]
     Indication: CONVULSION
     Dosage: 75MG THREE TIMES PER DAY
     Route: 048

REACTIONS (1)
  - Urinary retention [Recovering/Resolving]
